FAERS Safety Report 7179480-7 (Version None)
Quarter: 2010Q4

REPORT INFORMATION
  Report Type: 
  Country: None (occurrence: None)
  Receive Date: 20101221
  Receipt Date: 20101214
  Transmission Date: 20110411
  Serious: Yes (Other)
  Sender: FDA-Public Use
  Company Number: GB-B.I. PHARMACEUTICALS,INC./RIDGEFIELD-2010-UK-01188UK

PATIENT
  Age: 57 Year
  Sex: Male

DRUGS (11)
  1. SPIRIVA [Suspect]
     Indication: CHRONIC OBSTRUCTIVE PULMONARY DISEASE
     Dosage: 2.5 MCG
     Route: 055
  2. PROCORALAN [Suspect]
     Indication: ANGINA PECTORIS
     Dosage: 10 MG
     Route: 048
     Dates: start: 20101004
  3. ALFUZOSIN [Concomitant]
     Dosage: 2.5 MG
     Route: 048
  4. ASPIRIN [Concomitant]
     Dosage: 75 MG
     Route: 048
  5. ATORVASTATIN [Concomitant]
     Dosage: 40 MG
     Route: 048
  6. DILTIAZEM [Concomitant]
     Dosage: 60 MG
     Route: 048
  7. DILTIAZEM [Concomitant]
     Dosage: 60 MG
     Route: 048
  8. DILTIAZEM [Concomitant]
     Dosage: 60 MG
     Route: 048
  9. GLYCERYL TRINITRATE [Concomitant]
     Dosage: 300 MCG
     Route: 048
  10. ISOSORBIDE MONONITRATE [Concomitant]
     Dosage: 60 MG
     Route: 048
  11. NICORANDIL [Concomitant]
     Dosage: 30 MG
     Route: 048

REACTIONS (5)
  - ASTHENIA [None]
  - DIZZINESS [None]
  - HEART RATE DECREASED [None]
  - HEART RATE IRREGULAR [None]
  - VENTRICULAR ARRHYTHMIA [None]
